FAERS Safety Report 8914645 (Version 2)
Quarter: 2013Q1

REPORT INFORMATION
  Report Type: Report from Study
  Country: JP (occurrence: JP)
  Receive Date: 20121119
  Receipt Date: 20130122
  Transmission Date: 20140127
  Serious: Yes (Other)
  Sender: FDA-Public Use
  Company Number: JP-VERTEX PHARMACEUTICAL INC.-2012-024693

PATIENT
  Age: 63 Year
  Sex: Female

DRUGS (11)
  1. VX-950 (TELAPREVIR) [Suspect]
     Indication: CHRONIC HEPATITIS C
     Dosage: 1500 MG, QD
     Route: 048
     Dates: start: 20120214, end: 20120507
  2. RIBAVIRIN [Suspect]
     Indication: CHRONIC HEPATITIS C
     Dosage: 400 MG, QD
     Route: 048
     Dates: start: 20120214, end: 20120305
  3. RIBAVIRIN [Suspect]
     Dosage: 200 MG, QD
     Route: 048
     Dates: start: 20120306, end: 20120612
  4. RIBAVIRIN [Suspect]
     Dosage: 200 MG, QD
     Route: 048
     Dates: start: 20120619, end: 20120629
  5. RIBAVIRIN [Suspect]
     Dosage: 200 MG, QD
     Route: 048
     Dates: start: 20120710, end: 20120716
  6. PEGINTRON                          /01543001/ [Suspect]
     Indication: CHRONIC HEPATITIS C
     Dosage: 1.36 ?G/KG, QW
     Route: 058
     Dates: start: 20120214, end: 20120522
  7. PEGINTRON                          /01543001/ [Suspect]
     Dosage: 0.85 ?G/KG, QW
     Route: 058
     Dates: start: 20120529, end: 20120724
  8. DOMPERIDONE [Concomitant]
     Dosage: 30 MG, QD
     Route: 048
     Dates: start: 20120214, end: 20120507
  9. LOXOPROFEN                         /00890702/ [Concomitant]
     Dosage: UNK, PRN
     Route: 048
     Dates: start: 20120214, end: 20120312
  10. BLOPRESS [Concomitant]
     Dosage: 8 MG, QD
     Route: 048
     Dates: start: 20120327
  11. RIKKUNSHITO [Concomitant]
     Dosage: 7.5 MG, QD
     Route: 048
     Dates: start: 20120605, end: 20120723

REACTIONS (1)
  - Retinopathy [Recovered/Resolved]
